FAERS Safety Report 4690946-1 (Version None)
Quarter: 2005Q2

REPORT INFORMATION
  Report Type: 
  Country: None (occurrence: None)
  Receive Date: 20050615
  Receipt Date: 20050517
  Transmission Date: 20051028
  Serious: Yes (Other)
  Sender: FDA-Public Use
  Company Number: US-ROCHE-405193

PATIENT
  Age: 49 Year
  Sex: Male
  Weight: 93 kg

DRUGS (10)
  1. PEGASYS [Suspect]
     Dosage: PATIENT SKIPPED PEGASYS DOSE FOR ONE WEEK IN MARCH 2005.
     Route: 065
     Dates: start: 20050107
  2. PEGASYS [Suspect]
     Route: 065
     Dates: start: 20050315, end: 20050315
  3. PEGASYS [Suspect]
     Route: 065
     Dates: start: 20050315
  4. RIBASPHERE [Suspect]
     Dosage: RIBASPHERE WAS REDUCED TO 400 MG DAILY FOR FOUR DAYS IN MARCH,
     Route: 048
     Dates: start: 20050107
  5. RIBASPHERE [Suspect]
     Route: 048
     Dates: start: 20050315
  6. RIBASPHERE [Suspect]
     Route: 048
  7. SPIRONOLACTONE [Concomitant]
     Route: 065
     Dates: start: 20040415
  8. GLUCOTROL [Concomitant]
     Dates: start: 20010615
  9. NORVASC [Concomitant]
     Dates: start: 20010615
  10. LISINOPRIL [Concomitant]

REACTIONS (3)
  - ABDOMINAL DISTENSION [None]
  - ANAEMIA [None]
  - WHITE BLOOD CELL COUNT DECREASED [None]
